FAERS Safety Report 6346558-7 (Version None)
Quarter: 2009Q3

REPORT INFORMATION
  Report Type: 
  Country: None (occurrence: None)
  Receive Date: 20090909
  Receipt Date: 20090831
  Transmission Date: 20100115
  Serious: Yes (Other)
  Sender: FDA-Public Use
  Company Number: AU-ELI_LILLY_AND_COMPANY-AU200908006418

PATIENT
  Age: 75 Year
  Sex: Male

DRUGS (2)
  1. ZYPREXA [Suspect]
     Indication: DEMENTIA
     Dosage: 5 MG, DAILY (1/D)
     Route: 048
     Dates: start: 20090101
  2. OMEPRAZOLE [Concomitant]

REACTIONS (3)
  - DISTURBANCE IN SOCIAL BEHAVIOUR [None]
  - MOTOR DYSFUNCTION [None]
  - OFF LABEL USE [None]
